FAERS Safety Report 13753196 (Version 1)
Quarter: 2017Q3

REPORT INFORMATION
  Report Type: Other
  Country: CN (occurrence: CN)
  Receive Date: 20170714
  Receipt Date: 20170714
  Transmission Date: 20171127
  Serious: Yes (Hospitalization)
  Sender: FDA-Public Use
  Company Number: CN-ASTELLAS-2017US027360

PATIENT
  Age: 67 Year
  Sex: Male
  Weight: 50 kg

DRUGS (1)
  1. MYCAMINE [Suspect]
     Active Substance: MICAFUNGIN SODIUM
     Indication: PRODUCT USED FOR UNKNOWN INDICATION
     Route: 041
     Dates: start: 20170427, end: 20170427

REACTIONS (1)
  - Spinal pain [Recovering/Resolving]

NARRATIVE: CASE EVENT DATE: 20170427
